FAERS Safety Report 21617956 (Version 2)
Quarter: 2023Q2

REPORT INFORMATION
  Report Type: Spontaneous
  Country: GB (occurrence: GB)
  Receive Date: 20221119
  Receipt Date: 20230512
  Transmission Date: 20230721
  Serious: Yes (Other)
  Sender: FDA-Public Use
  Company Number: GB-TEVA-2022-GB-2827400

PATIENT
  Age: 21 Year
  Sex: Female

DRUGS (1)
  1. AJOVY [Suspect]
     Active Substance: FREMANEZUMAB-VFRM
     Indication: Migraine prophylaxis
     Route: 065
     Dates: start: 2021, end: 2022

REACTIONS (2)
  - Tonic clonic movements [Unknown]
  - Tremor [Unknown]

NARRATIVE: CASE EVENT DATE: 20220924
